FAERS Safety Report 5274521-6 (Version None)
Quarter: 2007Q1

REPORT INFORMATION
  Report Type: 
  Country: None (occurrence: None)
  Receive Date: 20070323
  Receipt Date: 20060719
  Transmission Date: 20070707
  Serious: Yes (Other)
  Sender: FDA-Public Use
  Company Number: US-PFIZER INC-2007021320

PATIENT
  Sex: Male

DRUGS (1)
  1. SUTENT [Suspect]

REACTIONS (1)
  - CELLULITIS OF MALE EXTERNAL GENITAL ORGAN [None]
